FAERS Safety Report 4414784-X (Version None)
Quarter: 2004Q3

REPORT INFORMATION
  Report Type: 
  Country: None (occurrence: None)
  Receive Date: 20040804
  Receipt Date: 20030929
  Transmission Date: 20050211
  Serious: No
  Sender: FDA-Public Use
  Company Number: US-BRISTOL-MYERS SQUIBB COMPANY-12396248

PATIENT
  Age: 69 Year
  Sex: Female
  Weight: 70 kg

DRUGS (4)
  1. GLUCOVANCE [Suspect]
     Indication: DIABETES MELLITUS
     Route: 048
     Dates: start: 20030401
  2. DYAZIDE [Concomitant]
  3. SYNTHROID [Concomitant]
  4. ESTRACE [Concomitant]

REACTIONS (3)
  - CORNEAL ABRASION [None]
  - DIZZINESS [None]
  - VISION BLURRED [None]
